FAERS Safety Report 4654691-0 (Version None)
Quarter: 2005Q2

REPORT INFORMATION
  Report Type: 
  Country: None (occurrence: None)
  Receive Date: 20050505
  Receipt Date: 20050505
  Transmission Date: 20051028
  Serious: Yes (Hospitalization)
  Sender: FDA-Public Use
  Company Number: None

PATIENT
  Age: 75 Year
  Sex: Female
  Weight: 67.1324 kg

DRUGS (2)
  1. GEMZAR [Suspect]
     Indication: PANCREATIC CARCINOMA
     Dosage: 1000MG/M2 Q 7D  IV
     Route: 042
     Dates: start: 20050131, end: 20050502
  2. ZOMETA [Suspect]
     Dosage: 4MG  Q 28D   IV
     Route: 042
     Dates: start: 20050131, end: 20050425

REACTIONS (2)
  - ABDOMINAL PAIN [None]
  - VOMITING [None]
